FAERS Safety Report 11071937 (Version 1)
Quarter: 2015Q2

REPORT INFORMATION
  Report Type: Spontaneous
  Country: US (occurrence: None)
  Receive Date: 20150424
  Receipt Date: 20150424
  Transmission Date: 20150821
  Serious: Yes (Other)
  Sender: FDA-Public Use
  Company Number: 1590288

PATIENT
  Age: 58 Year
  Sex: Male

DRUGS (1)
  1. TAMOXIFEN (NON-SPECIFIC) [Suspect]
     Active Substance: TAMOXIFEN
     Indication: CYSTOID MACULAR OEDEMA
     Dosage: 200MG DAILY FOR 6-7 YEARS

REACTIONS (3)
  - Off label use [None]
  - Maculopathy [None]
  - Oligodendroglioma [None]

NARRATIVE: CASE EVENT DATE: 201202
